FAERS Safety Report 18977902 (Version 1)
Quarter: 2021Q1

REPORT INFORMATION
  Report Type: Spontaneous
  Country: US (occurrence: US)
  Receive Date: 20210306
  Receipt Date: 20210306
  Transmission Date: 20210420
  Serious: No
  Sender: FDA-Public Use
  Company Number: US-GALDERMA-US2020023490

PATIENT
  Age: 33 Year
  Sex: Female

DRUGS (1)
  1. TRI?LUMA [Suspect]
     Active Substance: FLUOCINOLONE ACETONIDE\HYDROQUINONE\TRETINOIN
     Indication: SKIN HYPERPIGMENTATION
     Route: 061
     Dates: start: 20200212, end: 202004

REACTIONS (4)
  - Intentional product misuse [Recovered/Resolved]
  - Application site pain [Recovered/Resolved]
  - Application site irritation [Recovered/Resolved]
  - Drug ineffective [Not Recovered/Not Resolved]

NARRATIVE: CASE EVENT DATE: 20200212
